FAERS Safety Report 5308876-0 (Version None)
Quarter: 2007Q2

REPORT INFORMATION
  Report Type: 
  Country: None (occurrence: None)
  Receive Date: 20070426
  Receipt Date: 20070417
  Transmission Date: 20071010
  Serious: Yes (Other)
  Sender: FDA-Public Use
  Company Number: FR-PFIZER INC-2007015855

PATIENT
  Sex: Female
  Weight: 75 kg

DRUGS (6)
  1. LYRICA [Suspect]
     Indication: PAIN
     Dosage: DAILY DOSE:375MG
     Route: 048
     Dates: start: 20061007, end: 20070219
  2. LYRICA [Suspect]
     Indication: FIBROMYALGIA
  3. EFFEXOR [Concomitant]
     Indication: DEPRESSION
     Route: 048
  4. XANAX [Concomitant]
     Indication: DEPRESSION
     Route: 048
  5. LEVOTHYROXINE SODIUM [Concomitant]
     Indication: HYPOTHYROIDISM
     Route: 048
  6. LECTIL [Concomitant]
     Indication: VERTIGO

REACTIONS (5)
  - DYSPNOEA [None]
  - EYELID OEDEMA [None]
  - FACE OEDEMA [None]
  - LIP OEDEMA [None]
  - RASH MACULAR [None]
